FAERS Safety Report 8909698 (Version 2)
Quarter: 2013Q1

REPORT INFORMATION
  Report Type: Spontaneous
  Country: JP (occurrence: JP)
  Receive Date: 20121114
  Receipt Date: 20130304
  Transmission Date: 20140127
  Serious: Yes (Life-Threatening)
  Sender: FDA-Public Use
  Company Number: JP-ALLERGAN-1215724US

PATIENT
  Age: 60 Year
  Sex: Male

DRUGS (2)
  1. AIPHAGAN [Suspect]
     Indication: OPEN ANGLE GLAUCOMA
     Dosage: 2 GTT, BID
     Route: 047
     Dates: start: 20120829, end: 20120906
  2. COSOPT [Suspect]
     Indication: OPEN ANGLE GLAUCOMA
     Dosage: 1 GTT, BID
     Route: 047
     Dates: start: 20120725, end: 20120908

REACTIONS (1)
  - Anaphylactoid reaction [Recovered/Resolved]
